FAERS Safety Report 9222074 (Version 2)
Quarter: 2013Q2

REPORT INFORMATION
  Report Type: Report from Study
  Country: US (occurrence: US)
  Receive Date: 20130410
  Receipt Date: 20130423
  Transmission Date: 20140414
  Serious: Yes (Hospitalization, Other)
  Sender: FDA-Public Use
  Company Number: US-NAPPMUNDI-USA-2013-0100697

PATIENT
  Sex: Female
  Weight: 113.38 kg

DRUGS (8)
  1. DILAUDID TABLET [Suspect]
     Indication: BACK PAIN
     Dosage: 4 MG, QID
     Route: 048
  2. DILAUDID TABLET [Suspect]
     Indication: PAIN
     Dosage: 4 MG, Q4H
     Route: 048
  3. MORPHINE SULFATE (SIMILAR TO NDA 19-516) [Suspect]
     Indication: BACK PAIN
     Dosage: 15 MG, BID PRN
     Route: 048
  4. MORPHINE SULFATE (SIMILAR TO NDA 19-516) [Suspect]
     Indication: PAIN
  5. LYRICA [Concomitant]
     Indication: PAIN
     Dosage: 100 MG, BID
     Route: 048
  6. LEXAPRO [Concomitant]
     Indication: DEPRESSION
     Dosage: 10 MG, DAILY
     Route: 048
  7. FLEXERIL                           /00428402/ [Concomitant]
     Indication: MUSCLE SPASMS
     Dosage: 10 MG, QID PRN
     Route: 048
  8. LUNESTA [Concomitant]
     Indication: INSOMNIA
     Dosage: 1 MG, HS
     Route: 048

REACTIONS (2)
  - Arthropathy [Unknown]
  - Gallbladder disorder [Unknown]
